FAERS Safety Report 20921396 (Version 1)
Quarter: 2022Q2

REPORT INFORMATION
  Report Type: Spontaneous
  Country: IN (occurrence: IN)
  Receive Date: 20220606
  Receipt Date: 20220606
  Transmission Date: 20220720
  Serious: Yes (Other)
  Sender: FDA-Public Use
  Company Number: IN-JOURNEY MEDICAL CORPORATION-2022JNY00656

PATIENT
  Age: 6 Year
  Sex: Male

DRUGS (8)
  1. GLYCOPYRROLATE [Suspect]
     Active Substance: GLYCOPYRROLATE
     Indication: Induction of anaesthesia
     Dosage: 0.1 MG
     Route: 065
  2. TOPIRAMATE [Suspect]
     Active Substance: TOPIRAMATE
     Indication: Epilepsy
     Route: 065
  3. OXCARBAZEPINE [Concomitant]
     Active Substance: OXCARBAZEPINE
     Indication: Epilepsy
     Route: 065
  4. CLOBAZAM [Concomitant]
     Active Substance: CLOBAZAM
     Indication: Epilepsy
     Route: 065
  5. THIOPENTAL SODIUM [Concomitant]
     Active Substance: THIOPENTAL SODIUM
     Indication: Induction of anaesthesia
     Dosage: 5 MG/KG
     Route: 065
  6. FENTANYL [Concomitant]
     Active Substance: FENTANYL
     Indication: Induction of anaesthesia
     Dosage: 2 ?G/KG
     Route: 065
  7. VECURONIUM [Concomitant]
     Active Substance: VECURONIUM BROMIDE
     Indication: Induction of anaesthesia
     Dosage: 0.1 MG/KG
     Route: 065
  8. SEVOFLURANE [Concomitant]
     Active Substance: SEVOFLURANE
     Indication: Maintenance of anaesthesia

REACTIONS (2)
  - Hyperthermia [Recovered/Resolved]
  - Drug interaction [Recovered/Resolved]
